FAERS Safety Report 9785364 (Version 1)
Quarter: 2013Q4

REPORT INFORMATION
  Report Type: Spontaneous
  Country: US (occurrence: US)
  Receive Date: 20131227
  Receipt Date: 20131227
  Transmission Date: 20140711
  Serious: Yes (Other)
  Sender: FDA-Public Use
  Company Number: US-ASTRAZENECA-2013SE92811

PATIENT
  Age: 72 Year
  Sex: Male
  Weight: 81.6 kg

DRUGS (5)
  1. NEXIUM [Suspect]
     Indication: GASTROOESOPHAGEAL REFLUX DISEASE
     Route: 048
     Dates: start: 2007, end: 20131219
  2. NEXIUM [Suspect]
     Indication: GASTROOESOPHAGEAL REFLUX DISEASE
     Dosage: AT NIGHT
     Route: 048
  3. OTHER [Suspect]
  4. VIT E [Concomitant]
     Dosage: UNKNOWN UNK
  5. ASPIRIN [Concomitant]
     Dosage: UNKNOWN UNK

REACTIONS (11)
  - Precancerous mucosal lesion [Unknown]
  - Fall [Unknown]
  - Scoliosis [Unknown]
  - Periorbital contusion [Unknown]
  - Confusional state [Unknown]
  - Malaise [Unknown]
  - Swelling face [Unknown]
  - Off label use [Unknown]
  - Drug dose omission [Unknown]
  - Intentional drug misuse [Unknown]
  - Drug ineffective [Unknown]
